FAERS Safety Report 7070023-5 (Version None)
Quarter: 2010Q4

REPORT INFORMATION
  Report Type: 
  Country: None (occurrence: None)
  Receive Date: 20101028
  Receipt Date: 20100806
  Transmission Date: 20110411
  Serious: No
  Sender: FDA-Public Use
  Company Number: US-WYE-H16783710

PATIENT
  Age: 60 Year
  Sex: Female
  Weight: 52.21 kg

DRUGS (2)
  1. ADVIL [Suspect]
     Indication: ARTHROPOD STING
     Route: 048
     Dates: start: 20100805, end: 20100805
  2. ADVIL [Suspect]
     Indication: ANALGESIC INTERVENTION SUPPORTIVE THERAPY

REACTIONS (3)
  - ABDOMINAL PAIN [None]
  - DIZZINESS [None]
  - VISION BLURRED [None]
